FAERS Safety Report 8976556 (Version 1)
Quarter: 2012Q4

REPORT INFORMATION
  Report Type: 
  Country: US (occurrence: US)
  Receive Date: 20121220
  Receipt Date: 20121220
  Transmission Date: 20130627
  Serious: Yes (Life-Threatening, Hospitalization)
  Sender: FDA-Public Use
  Company Number: CHPA2012US025574

PATIENT
  Age: 75 Year
  Sex: Male

DRUGS (1)
  1. EXCEDRIN MIGRAINE [Suspect]
     Indication: PAIN
     Dosage: Unk, Unk
     Route: 048

REACTIONS (2)
  - Ulcer haemorrhage [Unknown]
  - Off label use [Unknown]
